FAERS Safety Report 6426588-7 (Version None)
Quarter: 2009Q4

REPORT INFORMATION
  Report Type: 
  Country: None (occurrence: None)
  Receive Date: 20091016
  Receipt Date: 20090512
  Transmission Date: 20100525
  Serious: Yes (Other)
  Sender: FDA-Public Use
  Company Number: 60186

PATIENT
  Age: 81 Year
  Sex: Male

DRUGS (1)
  1. LEUCOVORIN CALCIUM [Suspect]
     Dates: start: 20090505

REACTIONS (2)
  - ERYTHEMA [None]
  - HYPERHIDROSIS [None]
